FAERS Safety Report 7485129-6 (Version None)
Quarter: 2011Q2

REPORT INFORMATION
  Report Type: 
  Country: None (occurrence: None)
  Receive Date: 20110517
  Receipt Date: 20101116
  Transmission Date: 20111010
  Serious: No
  Sender: FDA-Public Use
  Company Number: US-BAYER-2010-003945

PATIENT
  Age: 72 Year
  Sex: Female

DRUGS (3)
  1. ACCUPRIL [Concomitant]
  2. ALEVE (CAPLET) [Suspect]
     Indication: ARTHRITIS
     Dosage: UNK
     Dates: start: 20101109
  3. PLAQUENIL [Concomitant]

REACTIONS (3)
  - CONSTIPATION [None]
  - ABDOMINAL DISCOMFORT [None]
  - GASTRIC DISORDER [None]
